FAERS Safety Report 4802146-2 (Version None)
Quarter: 2005Q4

REPORT INFORMATION
  Report Type: 
  Country: None (occurrence: None)
  Receive Date: 20051012
  Receipt Date: 20051006
  Transmission Date: 20060501
  Serious: Yes (Other)
  Sender: FDA-Public Use
  Company Number: DE-2005-013877

PATIENT
  Age: 32 Year
  Sex: Male

DRUGS (1)
  1. MAGNEVIST [Suspect]
     Indication: ANGIOGRAM
     Dosage: 30 ML, 1 DOSE, INTRAVENOUS
     Route: 042
     Dates: start: 20030101, end: 20030101

REACTIONS (5)
  - ABDOMINAL PAIN [None]
  - C-REACTIVE PROTEIN INCREASED [None]
  - CHILLS [None]
  - INFLUENZA LIKE ILLNESS [None]
  - PYREXIA [None]
